FAERS Safety Report 21382542 (Version 1)
Quarter: 2022Q3

REPORT INFORMATION
  Report Type: Other
  Country: CN (occurrence: None)
  Receive Date: 20220927
  Receipt Date: 20220927
  Transmission Date: 20221027
  Serious: Yes (Death, Hospitalization, Other)
  Sender: FDA-Public Use
  Company Number: CN-ROCHE-3185560

PATIENT
  Age: 52 Year
  Sex: Female

DRUGS (2)
  1. XELODA [Suspect]
     Active Substance: CAPECITABINE
     Indication: Colon cancer
     Dosage: FOR DAY 1-14 EVERY 21 DAYS FOR A CYCLE OF TREATMENT
     Route: 048
     Dates: start: 20150602, end: 201506
  2. OXALIPLATIN [Suspect]
     Active Substance: OXALIPLATIN
     Indication: Colon cancer
     Dosage: FOR DAY 1
     Route: 041
     Dates: start: 20150602

REACTIONS (9)
  - Multiple organ dysfunction syndrome [Fatal]
  - Gastrointestinal haemorrhage [Fatal]
  - Myelosuppression [Unknown]
  - Shock haemorrhagic [Unknown]
  - Respiratory failure [Unknown]
  - Pneumonia [Unknown]
  - Diarrhoea [Recovering/Resolving]
  - Anaemia [Unknown]
  - Mouth ulceration [Recovering/Resolving]
